FAERS Safety Report 6361990-3 (Version None)
Quarter: 2009Q3

REPORT INFORMATION
  Report Type: 
  Country: None (occurrence: None)
  Receive Date: 20090918
  Receipt Date: 20090910
  Transmission Date: 20100115
  Serious: Yes (Hospitalization)
  Sender: FDA-Public Use
  Company Number: JP-ABBOTT-09P-087-0573471-00

PATIENT
  Sex: Female
  Weight: 63 kg

DRUGS (20)
  1. HUMIRA [Suspect]
     Indication: RHEUMATOID ARTHRITIS
     Route: 058
     Dates: start: 20081212, end: 20090428
  2. METHOTREXATE [Suspect]
     Indication: RHEUMATOID ARTHRITIS
     Dates: start: 20090317, end: 20090512
  3. MIZORIBINE [Concomitant]
     Indication: RHEUMATOID ARTHRITIS
     Dosage: 100 MG DAILY
     Route: 048
     Dates: start: 20060525, end: 20090306
  4. LANSOPRAZOLE [Concomitant]
     Indication: GASTRITIS PROPHYLAXIS
     Dosage: 15 MG DAILY
     Route: 048
     Dates: start: 20041209, end: 20090512
  5. LOXOPROFEN SODIUM [Concomitant]
     Indication: RHEUMATOID ARTHRITIS
     Dosage: 60 MG DAILY
     Route: 048
     Dates: start: 20040807, end: 20090129
  6. VITAMIN B COMPLEX CAP [Concomitant]
     Indication: VITAMIN SUPPLEMENTATION
     Dosage: 75 MG DAILY
     Route: 048
     Dates: start: 20040819, end: 20090512
  7. BROTIZOLAM [Concomitant]
     Indication: PROPHYLAXIS
     Dosage: 0.25 MG DAILY
     Route: 048
     Dates: start: 20040815, end: 20090427
  8. BROTIZOLAM [Concomitant]
     Indication: INSOMNIA
  9. PREDNISOLONE [Concomitant]
     Indication: RHEUMATOID ARTHRITIS
     Dosage: 4 MG DAILY
     Route: 048
     Dates: start: 20040815
  10. RALOXIFENE HYDROCHLORIDE [Concomitant]
     Indication: OSTEOPOROSIS PROPHYLAXIS
     Dosage: 60 MG DAILY
     Route: 048
     Dates: start: 20050317
  11. RALOXIFENE HYDROCHLORIDE [Concomitant]
  12. MINOCYCLINE HYDROCHLORIDE [Concomitant]
     Indication: RHEUMATOID ARTHRITIS
     Dosage: 100 MG DAILY
     Route: 048
     Dates: start: 20050303, end: 20090512
  13. REBAMIPIDE [Concomitant]
     Indication: GASTRITIS PROPHYLAXIS
     Dosage: 200 MG DAILY
     Route: 048
     Dates: start: 20080801
  14. MELOXICAM [Concomitant]
     Indication: RHEUMATOID ARTHRITIS
     Dosage: 10 MG DAILY
     Route: 048
     Dates: start: 20090130
  15. TERBINAFINE HYDROCHLORIDE [Concomitant]
     Indication: PROPHYLAXIS
     Dosage: 125 MG DAILY
     Route: 048
     Dates: start: 20090424, end: 20090514
  16. TERBINAFINE HYDROCHLORIDE [Concomitant]
     Indication: TINEA INFECTION
  17. ZOPICLONE [Concomitant]
     Indication: PROPHYLAXIS
     Dosage: 7.5 MG DAILY
     Route: 048
     Dates: start: 20090424
  18. ZOPICLONE [Concomitant]
     Indication: INSOMNIA
  19. HYALURONATE SODIUM [Concomitant]
     Indication: RHEUMATOID ARTHRITIS
     Dates: start: 20080425, end: 20090317
  20. HYALURONATE SODIUM [Concomitant]
     Dates: start: 20090327

REACTIONS (2)
  - BONE MARROW FAILURE [None]
  - PNEUMONIA [None]
